FAERS Safety Report 8333761-X (Version None)
Quarter: 2012Q1

REPORT INFORMATION
  Report Type: 
  Country: None (occurrence: None)
  Receive Date: 20120328
  Receipt Date: 20100812
  Transmission Date: 20120608
  Serious: Yes (Hospitalization)
  Sender: FDA-Public Use
  Company Number: PHHY2010US48420

PATIENT
  Age: 82 Year
  Sex: Male
  Weight: 198 kg

DRUGS (11)
  1. BUMEX [Concomitant]
  2. SIMVASTATIN [Concomitant]
  3. VALTURNA [Suspect]
     Indication: OEDEMA PERIPHERAL
     Dosage: 150/160, ORAL, 150/160, ORAL
     Route: 048
     Dates: start: 20100125, end: 20100208
  4. VALTURNA [Suspect]
     Indication: HYPERTENSION
     Dosage: 150/160, ORAL, 150/160, ORAL
     Route: 048
     Dates: start: 20100125, end: 20100208
  5. VALTURNA [Suspect]
     Indication: OEDEMA PERIPHERAL
     Dosage: 150/160, ORAL, 150/160, ORAL
     Route: 048
     Dates: start: 20100209, end: 20100209
  6. VALTURNA [Suspect]
     Indication: HYPERTENSION
     Dosage: 150/160, ORAL, 150/160, ORAL
     Route: 048
     Dates: start: 20100209, end: 20100209
  7. SYNTHROID [Concomitant]
  8. LANTUS [Concomitant]
  9. DIURETICS (NO INGREDIENTS/SUBSTANCES) [Concomitant]
  10. COUMADIN [Concomitant]
  11. SPIRONOLACTONE [Concomitant]

REACTIONS (4)
  - RENAL FAILURE [None]
  - LETHARGY [None]
  - DIALYSIS [None]
  - URINE OUTPUT DECREASED [None]
